FAERS Safety Report 4334755-1 (Version None)
Quarter: 2004Q2

REPORT INFORMATION
  Report Type: 
  Country: None (occurrence: None)
  Receive Date: 20040407
  Receipt Date: 20040407
  Transmission Date: 20050107
  Serious: Yes (Life-Threatening)
  Sender: FDA-Public Use
  Company Number: None

PATIENT
  Sex: Female
  Weight: 56.6996 kg

DRUGS (2)
  1. PROZAC [Suspect]
  2. WELLBUTRIN [Suspect]

REACTIONS (24)
  - ANHEDONIA [None]
  - ANXIETY [None]
  - CARDIAC FLUTTER [None]
  - CRYING [None]
  - DIZZINESS [None]
  - DRUG INEFFECTIVE [None]
  - ELECTROENCEPHALOGRAM ABNORMAL [None]
  - FATIGUE [None]
  - FEELING ABNORMAL [None]
  - FEELING JITTERY [None]
  - HEAD INJURY [None]
  - HEADACHE [None]
  - HYPERSENSITIVITY [None]
  - HYPOAESTHESIA [None]
  - HYPOAESTHESIA ORAL [None]
  - MEMORY IMPAIRMENT [None]
  - NAUSEA [None]
  - PARAESTHESIA [None]
  - RASH [None]
  - SPEECH DISORDER [None]
  - SUICIDAL IDEATION [None]
  - VISION BLURRED [None]
  - VISUAL DISTURBANCE [None]
  - VOMITING [None]
